FAERS Safety Report 6354747-0 (Version None)
Quarter: 2009Q3

REPORT INFORMATION
  Report Type: 
  Country: None (occurrence: None)
  Receive Date: 20090914
  Receipt Date: 20090908
  Transmission Date: 20100115
  Serious: Yes (Death)
  Sender: FDA-Public Use
  Company Number: US-ASTRAZENECA-2009SE11838

PATIENT
  Age: 37 Year
  Sex: Male

DRUGS (5)
  1. PROPOFOL [Suspect]
     Indication: STATUS EPILEPTICUS
     Route: 042
  2. PROPOFOL [Suspect]
     Route: 042
  3. VALPROIC ACID [Concomitant]
  4. PHENYTOIN [Concomitant]
  5. PHENOBARBITAL [Concomitant]

REACTIONS (1)
  - PROPOFOL INFUSION SYNDROME [None]
